FAERS Safety Report 25774696 (Version 1)
Quarter: 2025Q3

REPORT INFORMATION
  Report Type: Spontaneous
  Country: EU (occurrence: EU)
  Receive Date: 20250908
  Receipt Date: 20250908
  Transmission Date: 20251021
  Serious: Yes (Other)
  Sender: MERCK SHARP & DOHME LLC
  Company Number: EU-009507513-2326650

PATIENT
  Age: 68 Year
  Sex: Male

DRUGS (4)
  1. PEMBROLIZUMAB [Suspect]
     Active Substance: PEMBROLIZUMAB
     Indication: Metastatic carcinoma of the bladder
  2. PEMBROLIZUMAB [Suspect]
     Active Substance: PEMBROLIZUMAB
     Indication: Metastatic carcinoma of the bladder
     Dates: start: 20250630, end: 20250630
  3. ENFORTUMAB [Suspect]
     Active Substance: ENFORTUMAB
     Indication: Metastatic carcinoma of the bladder
  4. ENFORTUMAB [Suspect]
     Active Substance: ENFORTUMAB
     Indication: Metastatic carcinoma of the bladder
     Dates: start: 20250630, end: 20250630

REACTIONS (3)
  - Hypoxia [Unknown]
  - Dyspnoea [Unknown]
  - Drug hypersensitivity [Unknown]

NARRATIVE: CASE EVENT DATE: 20250630
